FAERS Safety Report 6930169-6 (Version None)
Quarter: 2010Q3

REPORT INFORMATION
  Report Type: 
  Country: None (occurrence: None)
  Receive Date: 20100818
  Receipt Date: 20100721
  Transmission Date: 20110219
  Serious: No
  Sender: FDA-Public Use
  Company Number: US-PFIZER INC-2010091698

PATIENT
  Sex: Male

DRUGS (3)
  1. ADRIAMYCIN PFS [Suspect]
     Indication: PROSTATE CANCER
  2. CYTOXAN [Suspect]
     Indication: PROSTATE CANCER
  3. METHOTREXATE [Suspect]
     Indication: PROSTATE CANCER

REACTIONS (2)
  - DISEASE PROGRESSION [None]
  - PROSTATE CANCER [None]
